FAERS Safety Report 15261252 (Version 1)
Quarter: 2018Q3

REPORT INFORMATION
  Report Type: Report from Study
  Country: US (occurrence: US)
  Receive Date: 20180809
  Receipt Date: 20180809
  Transmission Date: 20181010
  Serious: Yes (Other)
  Sender: FDA-Public Use
  Company Number: US-SHIRE-US201830106

PATIENT
  Sex: Male

DRUGS (1)
  1. GATTEX [Suspect]
     Active Substance: TEDUGLUTIDE\WATER
     Indication: SHORT-BOWEL SYNDROME
     Dosage: 3.65 MG, 1X/DAY:QD
     Route: 058
     Dates: start: 20170907

REACTIONS (3)
  - Abdominal discomfort [Unknown]
  - Anaemia [Unknown]
  - Movement disorder [Unknown]
